FAERS Safety Report 7502987-7 (Version None)
Quarter: 2011Q2

REPORT INFORMATION
  Report Type: 
  Country: None (occurrence: None)
  Receive Date: 20110525
  Receipt Date: 20100921
  Transmission Date: 20111010
  Serious: No
  Sender: FDA-Public Use
  Company Number: US-NOVEN-ALL1-2010-04987

PATIENT
  Age: 5 Year
  Sex: Male
  Weight: 35.374 kg

DRUGS (3)
  1. PREVACID [Concomitant]
     Dosage: UNK MG, 2X/DAY:BID
     Route: 048
     Dates: start: 20070101
  2. DAYTRANA [Suspect]
     Dosage: 10 MG, 1X/DAY:QD
     Route: 062
     Dates: start: 20100921
  3. PULMICORT [Concomitant]
     Dosage: UNK MG, 1X/DAY:QD
     Route: 055
     Dates: start: 20070101

REACTIONS (3)
  - PRODUCT QUALITY ISSUE [None]
  - WRONG TECHNIQUE IN DRUG USAGE PROCESS [None]
  - OFF LABEL USE [None]
